FAERS Safety Report 17785416 (Version 2)
Quarter: 2020Q3

REPORT INFORMATION
  Report Type: Report from Study
  Country: MX (occurrence: MX)
  Receive Date: 20200514
  Receipt Date: 20200918
  Transmission Date: 20201102
  Serious: Yes (Hospitalization)
  Sender: FDA-Public Use
  Company Number: MX-ADVANZ PHARMA-202004005048

PATIENT

DRUGS (6)
  1. HYDROXYCHLOROQUINE SULFATE (AUTHORIZED GENERIC),PLAQUENIL [Suspect]
     Active Substance: HYDROXYCHLOROQUINE SULFATE
     Indication: COVID-19
     Dosage: 1 DOSAGE FORM, BID
     Dates: start: 20200426, end: 20200430
  2. LOPINAVIR+ RITONAVIR [Concomitant]
     Active Substance: LOPINAVIR\RITONAVIR
  3. CEFTRIAXONE. [Concomitant]
     Active Substance: CEFTRIAXONE
  4. AZITHROMYCIN ANHYDROUS. [Concomitant]
     Active Substance: AZITHROMYCIN ANHYDROUS
  5. ENOXAPARIN [Concomitant]
     Active Substance: ENOXAPARIN
  6. METHYLPREDNISOLONE. [Concomitant]
     Active Substance: METHYLPREDNISOLONE

REACTIONS (3)
  - White blood cell count decreased [Unknown]
  - Off label use [Unknown]
  - Blood creatine increased [Unknown]

NARRATIVE: CASE EVENT DATE: 20200426
